FAERS Safety Report 19351941 (Version 2)
Quarter: 2021Q2

REPORT INFORMATION
  Report Type: Spontaneous
  Country: US (occurrence: US)
  Receive Date: 20210531
  Receipt Date: 20210602
  Transmission Date: 20210717
  Serious: Yes (Other)
  Sender: FDA-Public Use
  Company Number: US-PFIZER INC-2021269962

PATIENT
  Age: 51 Year
  Sex: Female

DRUGS (1)
  1. XELJANZ [Suspect]
     Active Substance: TOFACITINIB CITRATE
     Dosage: 5 MG, 2X/DAY
     Dates: start: 20200402

REACTIONS (6)
  - Pain [Unknown]
  - Chest pain [Unknown]
  - Arthralgia [Unknown]
  - Peripheral swelling [Unknown]
  - Dyspnoea [Unknown]
  - Cardiac disorder [Unknown]
